FAERS Safety Report 8269091-4 (Version None)
Quarter: 2012Q1

REPORT INFORMATION
  Report Type: 
  Country: None (occurrence: None)
  Receive Date: 20120327
  Receipt Date: 20091008
  Transmission Date: 20120608
  Serious: Yes (Other)
  Sender: FDA-Public Use
  Company Number: PHEH2009US13436

PATIENT
  Sex: Male

DRUGS (2)
  1. NORVASC [Concomitant]
  2. GLEEVEC [Suspect]
     Dosage: 400 MG, BID, 300 MG, BID
     Dates: start: 20060101

REACTIONS (6)
  - ANAEMIA [None]
  - ABDOMINAL PAIN UPPER [None]
  - FLUID RETENTION [None]
  - NAUSEA [None]
  - DIARRHOEA [None]
  - FATIGUE [None]
